FAERS Safety Report 5587149-5 (Version None)
Quarter: 2008Q2

REPORT INFORMATION
  Report Type: 
  Country: None (occurrence: None)
  Receive Date: 20080107
  Receipt Date: 20071222
  Transmission Date: 20081010
  Serious: Yes (Hospitalization)
  Sender: FDA-Public Use
  Company Number: 2007BM000207

PATIENT
  Age: 73 Year
  Sex: Female

DRUGS (2)
  1. PREDNISOLONE [Suspect]
     Indication: TAKAYASU'S ARTERITIS
  2. ORAPRED [Suspect]

REACTIONS (1)
  - TUBERCULOUS PLEURISY [None]
